FAERS Safety Report 5545697-8 (Version None)
Quarter: 2007Q4

REPORT INFORMATION
  Report Type: 
  Country: None (occurrence: None)
  Receive Date: 20071207
  Receipt Date: 20071126
  Transmission Date: 20080405
  Serious: Yes (Death)
  Sender: FDA-Public Use
  Company Number: GXKR2007GR10150

PATIENT
  Age: 21 Year
  Sex: Male

DRUGS (12)
  1. VINCRISTINE [Suspect]
     Indication: ACUTE LYMPHOCYTIC LEUKAEMIA
  2. PREDNISONE [Suspect]
     Indication: ACUTE LYMPHOCYTIC LEUKAEMIA
  3. IDARUBICIN HCL [Suspect]
     Indication: ACUTE LYMPHOCYTIC LEUKAEMIA
  4. ASPARAGINASE (ASPARAGINASE) [Suspect]
     Indication: ACUTE LYMPHOCYTIC LEUKAEMIA
  5. CYCLOPHOSPHAMIDE [Suspect]
     Indication: ACUTE LYMPHOCYTIC LEUKAEMIA
  6. RED BLOOD CELLS [Concomitant]
  7. PLATELETS [Concomitant]
  8. CIPROFLOXACIN [Concomitant]
  9. GRANULOCYTE COLONY STIMULATING FACTOR (GRANULOCYTE COLONY STIMULATING [Concomitant]
  10. TEICOPLANIN (TEICOPLANIN) [Concomitant]
  11. VORICONAZOLE (VORICONAZOLE) [Concomitant]
  12. LINEZOLID [Concomitant]

REACTIONS (13)
  - CARDIOVASCULAR DISORDER [None]
  - ESCHAR [None]
  - FEBRILE NEUTROPENIA [None]
  - LYMPHANGITIS [None]
  - NECROTISING FASCIITIS [None]
  - ORCHIDECTOMY [None]
  - PSEUDOMONAL BACTERAEMIA [None]
  - SCROTAL INFECTION [None]
  - SCROTAL OEDEMA [None]
  - SEPTIC SHOCK [None]
  - STAPHYLOCOCCAL BACTERAEMIA [None]
  - WOUND DEBRIDEMENT [None]
  - WOUND INFECTION PSEUDOMONAS [None]
